FAERS Safety Report 6894106-5 (Version None)
Quarter: 2010Q3

REPORT INFORMATION
  Report Type: 
  Country: None (occurrence: None)
  Receive Date: 20100708
  Receipt Date: 20100216
  Transmission Date: 20110219
  Serious: Yes (Other)
  Sender: FDA-Public Use
  Company Number: 2009291710

PATIENT
  Sex: Female
  Weight: 68 kg

DRUGS (6)
  1. CHANTIX [Suspect]
     Indication: SMOKING CESSATION THERAPY
     Dosage: 1 MG, 2X/DAY, ORAL
     Route: 048
     Dates: start: 20090804, end: 20090801
  2. LOVAZA [Concomitant]
  3. CO-Q-10 (UBIDECARENONE) [Concomitant]
  4. LEVOTHYROXINE SODIUM [Concomitant]
  5. VITAMIN B [Concomitant]
  6. VITAMIN B12 (CYANOCOBALAMIN) INJECTION [Concomitant]

REACTIONS (4)
  - DRUG INEFFECTIVE [None]
  - DYSPNOEA [None]
  - HEADACHE [None]
  - MOOD SWINGS [None]
